FAERS Safety Report 6147637-X (Version None)
Quarter: 2009Q2

REPORT INFORMATION
  Report Type: 
  Country: None (occurrence: None)
  Receive Date: 20090408
  Receipt Date: 20090327
  Transmission Date: 20091009
  Serious: Yes (Hospitalization)
  Sender: FDA-Public Use
  Company Number: US-PFIZER INC-2008097774

PATIENT
  Sex: Female
  Weight: 52.8 kg

DRUGS (13)
  1. MARAVIROC [Suspect]
     Dosage: 100 MG, 2X/DAY
     Route: 048
     Dates: start: 20080630, end: 20081106
  2. RALTEGRAVIR [Suspect]
     Route: 048
     Dates: start: 20080630, end: 20081106
  3. DARUNAVIR [Suspect]
     Route: 048
     Dates: start: 20080630, end: 20081106
  4. RITONAVIR [Suspect]
     Route: 048
     Dates: start: 20080630, end: 20081106
  5. VALGANCICLOVIR [Concomitant]
  6. SEPTRA DS [Concomitant]
  7. MULTI-VITAMINS [Concomitant]
  8. ZITHROMAX [Concomitant]
  9. PEPCID [Concomitant]
  10. PULMICORT-100 [Concomitant]
  11. ALBUTEROL [Concomitant]
  12. GUAIFENESIN W/DEXTROMETHORPHAN [Concomitant]
  13. ZYRTEC [Concomitant]

REACTIONS (8)
  - DIZZINESS [None]
  - HEADACHE [None]
  - MYALGIA [None]
  - NAUSEA [None]
  - PYREXIA [None]
  - THROMBOCYTOPENIA [None]
  - VOMITING [None]
  - WHITE BLOOD CELL COUNT DECREASED [None]
